FAERS Safety Report 24549717 (Version 1)
Quarter: 2024Q4

REPORT INFORMATION
  Report Type: Other
  Country: BE (occurrence: BE)
  Receive Date: 20241025
  Receipt Date: 20241025
  Transmission Date: 20250115
  Serious: Yes (Hospitalization)
  Sender: B BRAUN
  Company Number: BE-B.Braun Medical Inc.-2163826

PATIENT
  Age: 44 Year
  Sex: Female

DRUGS (6)
  1. ACETAMINOPHEN [Suspect]
     Active Substance: ACETAMINOPHEN
  2. KETOROLAC [Suspect]
     Active Substance: KETOROLAC TROMETHAMINE
  3. ASPIRIN [Suspect]
     Active Substance: ASPIRIN
  4. NADROPARIN CALCIUM [Suspect]
     Active Substance: NADROPARIN CALCIUM
  5. PIRITRAMIDE [Suspect]
     Active Substance: PIRITRAMIDE
  6. CEFAZOLIN [Suspect]
     Active Substance: CEFAZOLIN

REACTIONS (1)
  - Acute febrile neutrophilic dermatosis [Recovered/Resolved]
